FAERS Safety Report 7908541-7 (Version None)
Quarter: 2011Q4

REPORT INFORMATION
  Report Type: 
  Country: None (occurrence: None)
  Receive Date: 20111111
  Receipt Date: 20111109
  Transmission Date: 20120403
  Serious: Yes (Other)
  Sender: FDA-Public Use
  Company Number: CH-PFIZER INC-2011273874

PATIENT
  Age: 30 Year
  Sex: Female

DRUGS (1)
  1. RELPAX [Suspect]
     Indication: HEADACHE
     Dosage: UNK, AS NEEDED

REACTIONS (2)
  - FEAR OF DISEASE [None]
  - CARDIAC DISORDER [None]
